FAERS Safety Report 8241895-3 (Version None)
Quarter: 2012Q1

REPORT INFORMATION
  Report Type: 
  Country: None (occurrence: None)
  Receive Date: 20120328
  Receipt Date: 20120320
  Transmission Date: 20120608
  Serious: Yes (Other)
  Sender: FDA-Public Use
  Company Number: US-ACTELION-A-US2011-54336

PATIENT

DRUGS (3)
  1. EPOPROSTENOL SODIUM [Suspect]
     Indication: PULMONARY ARTERIAL HYPERTENSION
     Dosage: 28 NG/KG, PER MIN
     Route: 042
     Dates: start: 20110823
  2. SILDENAFIL [Concomitant]
  3. COUMADIN [Concomitant]

REACTIONS (3)
  - SINUS HEADACHE [None]
  - HEADACHE [None]
  - SINUSITIS [None]
